FAERS Safety Report 4958713-9 (Version None)
Quarter: 2006Q1

REPORT INFORMATION
  Report Type: 
  Country: None (occurrence: None)
  Receive Date: 20060330
  Receipt Date: 20051215
  Transmission Date: 20060701
  Serious: Yes (Hospitalization)
  Sender: FDA-Public Use
  Company Number: US-MERCK-0512USA02568

PATIENT
  Age: 64 Year
  Sex: Female
  Weight: 125 kg

DRUGS (11)
  1. VIOXX [Suspect]
     Indication: ARTHRITIS
     Route: 048
     Dates: start: 20030910, end: 20041015
  2. VIOXX [Suspect]
     Indication: PAIN
     Route: 048
     Dates: start: 20030910, end: 20041015
  3. LIPITOR [Concomitant]
     Indication: HYPERLIPIDAEMIA
     Route: 065
  4. SINGULAIR [Concomitant]
     Indication: HYPERSENSITIVITY
     Route: 048
  5. LISINOPRIL [Concomitant]
     Indication: HYPERTENSION
     Route: 048
     Dates: start: 20040723, end: 20050512
  6. HYDROCHLOROTHIAZIDE [Concomitant]
     Indication: FLUID RETENTION
     Route: 065
     Dates: start: 20021028, end: 20040815
  7. HYDROCHLOROTHIAZIDE [Concomitant]
     Indication: HYPERTENSION
     Route: 065
     Dates: start: 20021028, end: 20040815
  8. NORVASC [Concomitant]
     Indication: HYPERTENSION
     Route: 065
     Dates: start: 20021211
  9. METFORMIN [Concomitant]
     Indication: DIABETES MELLITUS
     Route: 065
  10. NEXIUM [Concomitant]
     Indication: GASTRIC DISORDER
     Route: 065
  11. FUROSEMIDE [Concomitant]
     Indication: HYPERTENSION
     Route: 065
     Dates: start: 20040804, end: 20051010

REACTIONS (13)
  - ABDOMINAL PAIN [None]
  - CHRONIC OBSTRUCTIVE PULMONARY DISEASE [None]
  - DYSPNOEA [None]
  - FATIGUE [None]
  - HYPOAESTHESIA [None]
  - HYPOXIA [None]
  - MUSCULOSKELETAL CHEST PAIN [None]
  - NAUSEA [None]
  - OEDEMA PERIPHERAL [None]
  - PNEUMONIA [None]
  - PULMONARY EMBOLISM [None]
  - TRIGEMINAL NEURALGIA [None]
  - VERTEBRAL INJURY [None]
